FAERS Safety Report 8538130-5 (Version None)
Quarter: 2012Q3

REPORT INFORMATION
  Report Type: 
  Country: None (occurrence: None)
  Receive Date: 20120725
  Receipt Date: 20120718
  Transmission Date: 20120928
  Serious: Yes (Death, Other)
  Sender: FDA-Public Use
  Company Number: US-SANOFI-AVENTIS-2012SA049379

PATIENT
  Sex: Male

DRUGS (4)
  1. XARELTO [Suspect]
     Indication: ATRIAL FIBRILLATION
     Dates: end: 20120601
  2. XARELTO [Suspect]
     Indication: CEREBROVASCULAR ACCIDENT PROPHYLAXIS
     Dates: end: 20120601
  3. AMIODARONE HYDROCHLORIDE [Concomitant]
  4. PLAVIX [Suspect]
     Dates: end: 20120601

REACTIONS (4)
  - DEATH [None]
  - GASTROINTESTINAL HAEMORRHAGE [None]
  - POLYP [None]
  - MYOCARDIAL INFARCTION [None]
